FAERS Safety Report 13743091 (Version 1)
Quarter: 2017Q3

REPORT INFORMATION
  Report Type: Spontaneous
  Country: JP (occurrence: JP)
  Receive Date: 20170711
  Receipt Date: 20170711
  Transmission Date: 20171127
  Serious: Yes (Other)
  Sender: FDA-Public Use
  Company Number: PHHY2012JP048230

PATIENT
  Age: 70 Year
  Sex: Male

DRUGS (5)
  1. MIKELAN LA 2% [Suspect]
     Active Substance: CARTEOLOL HYDROCHLORIDE
     Route: 047
  2. BRONUCK [Concomitant]
     Active Substance: BROMFENAC SODIUM
     Route: 047
  3. LANSOPRAZOLE. [Concomitant]
     Active Substance: LANSOPRAZOLE
  4. METHYCOBAL [Concomitant]
     Active Substance: METHYLCOBALAMIN
  5. LUMIGAN [Concomitant]
     Active Substance: BIMATOPROST
     Dosage: UNK
     Route: 047

REACTIONS (1)
  - Rash erythematous [Unknown]
